FAERS Safety Report 5247086-2 (Version None)
Quarter: 2007Q1

REPORT INFORMATION
  Report Type: 
  Country: None (occurrence: None)
  Receive Date: 20070221
  Receipt Date: 20070209
  Transmission Date: 20070707
  Serious: Yes (Death)
  Sender: FDA-Public Use
  Company Number: 2006BI018717

PATIENT
  Age: 64 Year
  Sex: Female

DRUGS (3)
  1. AVONEX [Suspect]
     Indication: MULTIPLE SCLEROSIS
     Dates: start: 20011004
  2. COUMADIN [Concomitant]
  3. ASPIRIN [Concomitant]

REACTIONS (1)
  - INTRAVENTRICULAR HAEMORRHAGE [None]
